FAERS Safety Report 4638699-7 (Version None)
Quarter: 2005Q2

REPORT INFORMATION
  Report Type: 
  Country: None (occurrence: None)
  Receive Date: 20050419
  Receipt Date: 20050404
  Transmission Date: 20051028
  Serious: Yes (Hospitalization)
  Sender: FDA-Public Use
  Company Number: GB-BOEHRINGER INGELHEIM PHARMACEUTICALS, INC.-2005-UK-00560UK

PATIENT
  Age: 74 Year
  Sex: Male

DRUGS (3)
  1. SPIRIVA [Suspect]
     Dosage: 2 CAPSULES DAILY
     Route: 055
  2. SPIRIVA [Suspect]
     Route: 055
  3. AMITRIPTYLINE HCL TAB [Concomitant]
     Dosage: 10 MG NOCTE

REACTIONS (3)
  - ANEURYSM [None]
  - DRY MOUTH [None]
  - RENAL IMPAIRMENT [None]
